FAERS Safety Report 8035530-7 (Version None)
Quarter: 2012Q1

REPORT INFORMATION
  Report Type: 
  Country: None (occurrence: None)
  Receive Date: 20120110
  Receipt Date: 20120110
  Transmission Date: 20120608
  Serious: Yes (Death, Hospitalization)
  Sender: FDA-Public Use
  Company Number: None

PATIENT
  Sex: Female
  Weight: 135.2 kg

DRUGS (1)
  1. NORDITROPIN FLEXPRO [Suspect]
     Indication: HYPOPITUITARISM
     Dosage: 0.7 MG SC QD SC
     Route: 058
     Dates: start: 20070401, end: 20111014

REACTIONS (1)
  - DEATH [None]
